FAERS Safety Report 7012537-X (Version None)
Quarter: 2010Q3

REPORT INFORMATION
  Report Type: 
  Country: None (occurrence: None)
  Receive Date: 20100913
  Receipt Date: 20100308
  Transmission Date: 20110219
  Serious: Yes (Hospitalization)
  Sender: FDA-Public Use
  Company Number: 2010SP014606

PATIENT
  Age: 23 Year
  Sex: Female
  Weight: 129.2752 kg

DRUGS (1)
  1. IMPLANON [Suspect]
     Indication: PRODUCT USED FOR UNKNOWN INDICATION
     Dosage: 1 DF
     Dates: start: 20080508

REACTIONS (6)
  - ABDOMINAL PAIN [None]
  - AMENORRHOEA [None]
  - ASTHENIA [None]
  - BACK PAIN [None]
  - HYPOMENORRHOEA [None]
  - VAGINAL DISCHARGE [None]
